FAERS Safety Report 18931464 (Version 4)
Quarter: 2022Q1

REPORT INFORMATION
  Report Type: Report from Study
  Country: US (occurrence: None)
  Receive Date: 20210223
  Receipt Date: 20220303
  Transmission Date: 20220423
  Serious: Yes (Other)
  Sender: FDA-Public Use
  Company Number: US-MERCK HEALTHCARE KGAA-9220113

PATIENT
  Age: 56 Year
  Sex: Female

DRUGS (4)
  1. REBIF [Suspect]
     Active Substance: INTERFERON BETA-1A
     Indication: Multiple sclerosis
     Dates: start: 20111007, end: 20141005
  2. REBIF [Suspect]
     Active Substance: INTERFERON BETA-1A
     Route: 058
     Dates: start: 20141103
  3. MERCAPTOPURINE [Suspect]
     Active Substance: MERCAPTOPURINE
     Indication: Autoimmune hepatitis
  4. MERCAPTOPURINE [Suspect]
     Active Substance: MERCAPTOPURINE
     Dosage: INCREASED DOSE OF 6MP

REACTIONS (17)
  - Nonalcoholic fatty liver disease [Not Recovered/Not Resolved]
  - Autoimmune hepatitis [Unknown]
  - Immune system disorder [Unknown]
  - Red blood cell count decreased [Unknown]
  - White blood cell count decreased [Unknown]
  - Multiple sclerosis [Unknown]
  - Multiple sclerosis relapse [Unknown]
  - Temperature intolerance [Unknown]
  - Hangover [Unknown]
  - Hypersomnia [Unknown]
  - Pain [Unknown]
  - Feeling abnormal [Unknown]
  - Loss of personal independence in daily activities [Unknown]
  - Lethargy [Unknown]
  - Sensitivity to weather change [Unknown]
  - Fatigue [Unknown]
  - Impaired work ability [Unknown]

NARRATIVE: CASE EVENT DATE: 20220201
